FAERS Safety Report 8432218-5 (Version None)
Quarter: 2012Q2

REPORT INFORMATION
  Report Type: 
  Country: None (occurrence: None)
  Receive Date: 20120613
  Receipt Date: 20120605
  Transmission Date: 20120825
  Serious: Yes (Hospitalization)
  Sender: FDA-Public Use
  Company Number: ES-BRISTOL-MYERS SQUIBB COMPANY-16664179

PATIENT
  Age: 62 Year
  Sex: Male
  Weight: 106 kg

DRUGS (13)
  1. DEXAMETHASONE [Concomitant]
     Dates: start: 20120123
  2. CISPLATIN [Suspect]
     Indication: NON-SMALL CELL LUNG CANCER STAGE III
     Dosage: LAST DOSE ON 12MAR12
     Route: 042
     Dates: start: 20120130, end: 20120312
  3. PEMETREXED DISODIUM [Suspect]
     Indication: NON-SMALL CELL LUNG CANCER STAGE III
     Dosage: INTER ON 12MAR12 RESTART ON 16APR12 LAST DOSE ON 7MAY12
     Route: 042
     Dates: start: 20120130
  4. FOLIC ACID [Concomitant]
     Dates: start: 20120123
  5. VITAMIN B-12 [Concomitant]
     Dates: start: 20120123
  6. BUDESONIDE [Concomitant]
     Dates: start: 20091123
  7. VALSARTAN [Concomitant]
     Dates: start: 20081001
  8. ACETAMINOPHEN [Concomitant]
     Dates: start: 20120312
  9. AMOXICILLIN AND CLAVULANATE POTASSIUM [Concomitant]
     Dates: start: 20120517
  10. SEREVENT [Concomitant]
     Dates: start: 20100601
  11. IBUPROFEN [Concomitant]
     Dates: start: 20120521
  12. LORATADINE [Concomitant]
     Dates: start: 20101001
  13. OMEPRAZOLE [Concomitant]
     Dates: start: 20120130

REACTIONS (1)
  - PNEUMONITIS [None]
